FAERS Safety Report 15259899 (Version 3)
Quarter: 2018Q3

REPORT INFORMATION
  Report Type: Spontaneous
  Country: US (occurrence: US)
  Receive Date: 20180809
  Receipt Date: 20180924
  Transmission Date: 20181010
  Serious: No
  Sender: FDA-Public Use
  Company Number: US-SA-2018SA217813

PATIENT
  Age: 51 Year
  Sex: Female

DRUGS (1)
  1. KEVZARA [Suspect]
     Active Substance: SARILUMAB
     Indication: RHEUMATOID ARTHRITIS
     Dosage: 200 MG, QOW
     Route: 058
     Dates: start: 201806, end: 201808

REACTIONS (8)
  - Arthralgia [Unknown]
  - Injection site irritation [Unknown]
  - Injection site pruritus [Unknown]
  - Drug ineffective [Unknown]
  - Injection site hypersensitivity [Unknown]
  - Pain in extremity [Unknown]
  - Injection site swelling [Unknown]
  - Injection site bruising [Unknown]
